FAERS Safety Report 4894512-4 (Version None)
Quarter: 2006Q1

REPORT INFORMATION
  Report Type: 
  Country: None (occurrence: None)
  Receive Date: 20060127
  Receipt Date: 20060118
  Transmission Date: 20060701
  Serious: Yes (Death, Hospitalization)
  Sender: FDA-Public Use
  Company Number: US-JNJFOC-20050702715

PATIENT
  Sex: Female
  Weight: 104.33 kg

DRUGS (6)
  1. ORTHO EVRA [Suspect]
     Indication: DRUG USE FOR UNKNOWN INDICATION
     Route: 062
     Dates: start: 20041115
  2. PERCOCET [Concomitant]
     Route: 048
  3. PERCOCET [Concomitant]
     Indication: PAIN
     Route: 048
  4. LORA TAB [Concomitant]
     Indication: HEADACHE
     Route: 048
  5. LOWDEN [Concomitant]
  6. TYLENOL-500 [Concomitant]

REACTIONS (20)
  - AGGRESSION [None]
  - ATELECTASIS [None]
  - BRADYCARDIA [None]
  - BRAIN OEDEMA [None]
  - CEREBRAL HAEMORRHAGE [None]
  - CEREBRAL INFARCTION [None]
  - CEREBRAL VENOUS THROMBOSIS [None]
  - CEREBROVASCULAR ACCIDENT [None]
  - COAGULOPATHY [None]
  - DRUG EXPOSURE VIA BREAST MILK [None]
  - GRAND MAL CONVULSION [None]
  - HEART RATE INCREASED [None]
  - INTRACRANIAL VENOUS SINUS THROMBOSIS [None]
  - JUGULAR VEIN THROMBOSIS [None]
  - PHOTOPHOBIA [None]
  - STATUS EPILEPTICUS [None]
  - SUBARACHNOID HAEMORRHAGE [None]
  - SUPERIOR SAGITTAL SINUS THROMBOSIS [None]
  - UNRESPONSIVE TO PAIN STIMULI [None]
  - VENOUS OCCLUSION [None]
